FAERS Safety Report 13243594 (Version 5)
Quarter: 2017Q2

REPORT INFORMATION
  Report Type: Report from Study
  Country: US (occurrence: US)
  Receive Date: 20170216
  Receipt Date: 20170620
  Transmission Date: 20170830
  Serious: Yes (Hospitalization, Other)
  Sender: FDA-Public Use
  Company Number: US-ACTELION-A-US2015-119150

PATIENT
  Age: 62 Year
  Sex: Female
  Weight: 58.5 kg

DRUGS (4)
  1. SILDENAFIL CITRATE. [Concomitant]
     Active Substance: SILDENAFIL CITRATE
     Dosage: 20 MG, TID
  2. VELETRI [Suspect]
     Active Substance: EPOPROSTENOL
     Indication: PULMONARY ARTERIAL HYPERTENSION
     Dosage: 15 NG/KG, PER MIN
     Route: 042
  3. OPSUMIT [Suspect]
     Active Substance: MACITENTAN
     Indication: PULMONARY ARTERIAL HYPERTENSION
     Dosage: 10 MG, QD
     Route: 048
     Dates: start: 20150501
  4. VELETRI [Suspect]
     Active Substance: EPOPROSTENOL
     Dosage: UNK
     Route: 042

REACTIONS (24)
  - Infection [Unknown]
  - Pulmonary congestion [Unknown]
  - Cough [Unknown]
  - Staphylococcus test positive [Recovered/Resolved]
  - Flushing [Unknown]
  - Palpitations [Unknown]
  - Pyrexia [Recovered/Resolved]
  - Rhinorrhoea [Recovered/Resolved]
  - Ear pain [Recovered/Resolved]
  - Oedema peripheral [Recovered/Resolved]
  - Diarrhoea [Unknown]
  - Viral upper respiratory tract infection [Unknown]
  - Decreased appetite [Unknown]
  - Chest pain [Unknown]
  - Influenza [Recovered/Resolved]
  - Anxiety [Unknown]
  - Headache [Unknown]
  - Gastrooesophageal reflux disease [Unknown]
  - Suicidal ideation [Unknown]
  - Fatigue [Unknown]
  - Hypoaesthesia [Unknown]
  - Nausea [Recovered/Resolved]
  - Pneumonia [Unknown]
  - Dyspepsia [Unknown]

NARRATIVE: CASE EVENT DATE: 20150507
